FAERS Safety Report 20198504 (Version 1)
Quarter: 2021Q4

REPORT INFORMATION
  Report Type: Spontaneous
  Country: JP (occurrence: JP)
  Receive Date: 20211217
  Receipt Date: 20211217
  Transmission Date: 20220303
  Serious: Yes (Hospitalization, Other)
  Sender: FDA-Public Use
  Company Number: JP-MACLEODS PHARMACEUTICALS US LTD-MAC2021033722

PATIENT

DRUGS (1)
  1. METFORMIN [Suspect]
     Active Substance: METFORMIN HYDROCHLORIDE
     Indication: Diabetes mellitus
     Dosage: 500 MILLIGRAM, QD
     Route: 065

REACTIONS (5)
  - Metabolic acidosis [Recovering/Resolving]
  - Toxic encephalopathy [Recovering/Resolving]
  - Drug level increased [Recovering/Resolving]
  - Cytotoxic oedema [Not Recovered/Not Resolved]
  - Lactic acidosis [Recovering/Resolving]
